FAERS Safety Report 24239631 (Version 1)
Quarter: 2024Q3

REPORT INFORMATION
  Report Type: Spontaneous
  Country: US (occurrence: US)
  Receive Date: 20240822
  Receipt Date: 20240822
  Transmission Date: 20241016
  Serious: No
  Sender: AVADEL CNS PHARMA
  Company Number: US-AVADEL CNS PHARMACEUTICALS, LLC-2024AVA01009

PATIENT
  Sex: Female
  Weight: 65.306 kg

DRUGS (24)
  1. LUMRYZ [Suspect]
     Active Substance: SODIUM OXYBATE
     Indication: Narcolepsy
     Dosage: 4.5 G
     Dates: start: 202405, end: 2024
  2. LUMRYZ [Suspect]
     Active Substance: SODIUM OXYBATE
     Indication: Cataplexy
  3. LUMRYZ [Suspect]
     Active Substance: SODIUM OXYBATE
     Indication: Obstructive sleep apnoea syndrome
  4. LUMRYZ [Suspect]
     Active Substance: SODIUM OXYBATE
     Indication: Nasal congestion
  5. LUMRYZ [Suspect]
     Active Substance: SODIUM OXYBATE
     Indication: Laryngeal oedema
  6. LUMRYZ [Suspect]
     Active Substance: SODIUM OXYBATE
     Indication: Dysphonia
  7. LUMRYZ [Suspect]
     Active Substance: SODIUM OXYBATE
     Indication: Tonsillar disorder
  8. LUMRYZ [Suspect]
     Active Substance: SODIUM OXYBATE
     Indication: Migraine with aura
  9. LUMRYZ [Suspect]
     Active Substance: SODIUM OXYBATE
     Indication: Snoring
  10. LUMRYZ [Suspect]
     Active Substance: SODIUM OXYBATE
     Indication: Narcolepsy
     Dosage: 6 G, ONCE NIGHTLY AT BEDTIME
     Dates: start: 2024
  11. LUMRYZ [Suspect]
     Active Substance: SODIUM OXYBATE
     Indication: Cataplexy
  12. LUMRYZ [Suspect]
     Active Substance: SODIUM OXYBATE
     Indication: Obstructive sleep apnoea syndrome
  13. LUMRYZ [Suspect]
     Active Substance: SODIUM OXYBATE
     Indication: Nasal congestion
  14. LUMRYZ [Suspect]
     Active Substance: SODIUM OXYBATE
     Indication: Snoring
  15. LUMRYZ [Suspect]
     Active Substance: SODIUM OXYBATE
     Indication: Laryngeal oedema
  16. LUMRYZ [Suspect]
     Active Substance: SODIUM OXYBATE
     Indication: Dysphonia
  17. LUMRYZ [Suspect]
     Active Substance: SODIUM OXYBATE
     Indication: Tonsillar disorder
  18. LUMRYZ [Suspect]
     Active Substance: SODIUM OXYBATE
     Indication: Migraine with aura
  19. PROBIOTICS NOS [Concomitant]
     Active Substance: PROBIOTICS NOS
  20. VITAMINS [Concomitant]
     Active Substance: VITAMINS
  21. WAKIX [Concomitant]
     Active Substance: PITOLISANT HYDROCHLORIDE
  22. TYLENOL [Concomitant]
     Active Substance: ACETAMINOPHEN
  23. HAIR SKIN NAILS [Concomitant]
  24. XYWAV [Concomitant]
     Active Substance: CALCIUM OXYBATE\MAGNESIUM OXYBATE\POTASSIUM OXYBATE\SODIUM OXYBATE

REACTIONS (2)
  - Acne [Unknown]
  - Somnolence [Unknown]

NARRATIVE: CASE EVENT DATE: 20240101
